FAERS Safety Report 5241548-X (Version None)
Quarter: 2007Q1

REPORT INFORMATION
  Report Type: 
  Country: None (occurrence: None)
  Receive Date: 20070215
  Receipt Date: 20070215
  Transmission Date: 20070707
  Serious: Yes (Life-Threatening)
  Sender: FDA-Public Use
  Company Number: None

PATIENT
  Age: 29 Year
  Sex: Male

DRUGS (2)
  1. LEVAQUIN [Suspect]
     Indication: POSTOPERATIVE FEVER
     Dosage: 500 MG IV ON 10/24 250 MG IV ON 10/26
     Route: 042
  2. VALGANCICLOVIR HCL [Concomitant]

REACTIONS (1)
  - STEVENS-JOHNSON SYNDROME [None]
